FAERS Safety Report 6069305-5 (Version None)
Quarter: 2009Q1

REPORT INFORMATION
  Report Type: 
  Country: None (occurrence: None)
  Receive Date: 20090206
  Receipt Date: 20090127
  Transmission Date: 20090719
  Serious: Yes (Other)
  Sender: FDA-Public Use
  Company Number: BR-PFIZER INC-2009163442

PATIENT

DRUGS (3)
  1. FRONTAL [Suspect]
     Indication: DEPRESSION
     Dosage: 0.5 MG, 3X/DAY
     Route: 048
     Dates: start: 20060101
  2. ALPRAZOLAM [Suspect]
     Indication: DEPRESSION
     Dosage: UNK
     Route: 048
     Dates: start: 20080101
  3. ANTIDEPRESSANTS [Concomitant]
     Dosage: UNK
     Route: 065

REACTIONS (6)
  - AGITATION [None]
  - CONFUSIONAL STATE [None]
  - DRUG INEFFECTIVE [None]
  - INSOMNIA [None]
  - MALAISE [None]
  - RESTLESSNESS [None]
